FAERS Safety Report 12432758 (Version 1)
Quarter: 2016Q2

REPORT INFORMATION
  Report Type: Spontaneous
  Country: US (occurrence: US)
  Receive Date: 20160603
  Receipt Date: 20160603
  Transmission Date: 20160815
  Serious: No
  Sender: FDA-Public Use
  Company Number: US-TEVA-660513ACC

PATIENT
  Age: 15 Year
  Sex: Female
  Weight: 49.94 kg

DRUGS (2)
  1. CLARITIN [Concomitant]
     Active Substance: LORATADINE
     Indication: HYPERSENSITIVITY
  2. AFTERA [Suspect]
     Active Substance: LEVONORGESTREL
     Indication: POST COITAL CONTRACEPTION
     Dates: start: 20160510, end: 20160510

REACTIONS (5)
  - Breast tenderness [Not Recovered/Not Resolved]
  - Flank pain [Not Recovered/Not Resolved]
  - Prescription drug used without a prescription [Unknown]
  - Pollakiuria [Not Recovered/Not Resolved]
  - Intentional product misuse [Unknown]

NARRATIVE: CASE EVENT DATE: 20160511
